FAERS Safety Report 17983083 (Version 12)
Quarter: 2023Q2

REPORT INFORMATION
  Report Type: Spontaneous
  Country: US (occurrence: US)
  Receive Date: 20200706
  Receipt Date: 20230418
  Transmission Date: 20230722
  Serious: Yes (Hospitalization)
  Sender: FDA-Public Use
  Company Number: US-PFIZER INC-2020256936

PATIENT
  Age: 79 Year
  Sex: Female

DRUGS (1)
  1. IBRANCE [Suspect]
     Active Substance: PALBOCICLIB
     Dosage: 125 MG
     Dates: start: 20211227

REACTIONS (17)
  - Cerebrovascular accident [Unknown]
  - Transient ischaemic attack [Unknown]
  - Neoplasm progression [Unknown]
  - Depression [Unknown]
  - Increased appetite [Unknown]
  - Mobility decreased [Unknown]
  - Fatigue [Unknown]
  - Hunger [Unknown]
  - Thermal burn [Unknown]
  - Malaise [Unknown]
  - Feeling abnormal [Unknown]
  - Anxiety [Recovering/Resolving]
  - Dry mouth [Unknown]
  - Blood test abnormal [Unknown]
  - Stress [Unknown]
  - Fatigue [Unknown]
  - Lip dry [Unknown]
